FAERS Safety Report 5241354-6 (Version None)
Quarter: 2007Q1

REPORT INFORMATION
  Report Type: 
  Country: None (occurrence: None)
  Receive Date: 20070220
  Receipt Date: 20070213
  Transmission Date: 20070707
  Serious: Yes (Hospitalization)
  Sender: FDA-Public Use
  Company Number: NL-ELI_LILLY_AND_COMPANY-NL200702002574

PATIENT
  Age: 60 Year
  Sex: Male
  Weight: 70 kg

DRUGS (9)
  1. ZYPREXA [Suspect]
     Indication: BIPOLAR DISORDER
     Dosage: 5 MG, DAILY (1/D)
     Route: 065
     Dates: start: 20070115, end: 20070123
  2. ZYPREXA [Suspect]
     Dosage: 20 MG, UNK
  3. LAMICTAL [Concomitant]
     Indication: BIPOLAR DISORDER
     Dosage: 25 MG, OTHER
     Dates: start: 20060128
  4. RIVOTRIL [Concomitant]
     Dosage: 1 MG, 2/W
  5. DEPAKENE [Concomitant]
     Indication: BIPOLAR DISORDER
     Dosage: 500 MG, 2/D
     Dates: start: 20060106
  6. AKINETON [Concomitant]
     Dosage: 2 MG, 4/D
  7. DALMADORM [Concomitant]
     Dosage: 30 MG, DAILY (1/D)
  8. HALOPERIDOL [Concomitant]
     Dosage: 2 MG, 2/D
  9. MOVICOLON [Concomitant]
     Dosage: 1 UNK, DAILY (1/D)

REACTIONS (8)
  - BLOOD CREATINE PHOSPHOKINASE INCREASED [None]
  - C-REACTIVE PROTEIN INCREASED [None]
  - CONFUSIONAL STATE [None]
  - FOOD AVERSION [None]
  - MONOCYTOSIS [None]
  - PAIN [None]
  - PNEUMONIA [None]
  - SOMNOLENCE [None]
